FAERS Safety Report 9174719 (Version 1)
Quarter: 2013Q1

REPORT INFORMATION
  Report Type: Spontaneous
  Country: US (occurrence: None)
  Receive Date: 20130318
  Receipt Date: 20130318
  Transmission Date: 20140127
  Serious: Yes (Hospitalization)
  Sender: FDA-Public Use
  Company Number: FK201300730

PATIENT
  Age: 17 Year
  Sex: Male

DRUGS (1)
  1. ROPIVACAINE [Suspect]
     Indication: LOCAL ANAESTHESIA
     Dates: start: 20121220, end: 20121220

REACTIONS (8)
  - Convulsion [None]
  - Toxicity to various agents [None]
  - White blood cell count decreased [None]
  - Anaesthetic complication [None]
  - Red blood cell count increased [None]
  - Mean cell volume decreased [None]
  - Mean cell haemoglobin decreased [None]
  - Red cell distribution width increased [None]
